FAERS Safety Report 25596882 (Version 1)
Quarter: 2025Q3

REPORT INFORMATION
  Report Type: Spontaneous
  Country: US (occurrence: None)
  Receive Date: 20250722
  Receipt Date: 20250722
  Transmission Date: 20251021
  Serious: Yes (Disabling)
  Sender: FDA-CTU
  Company Number: None

PATIENT
  Age: 76 Year
  Sex: Female
  Weight: 87.75 kg

DRUGS (16)
  1. WEGOVY [Suspect]
     Active Substance: SEMAGLUTIDE
     Indication: Weight control
     Dosage: OTHER QUANTITY : 1 INJECTION(S);?OTHER FREQUENCY : WEEKLY;?
     Route: 058
     Dates: end: 20250717
  2. Eliquis 5mg apixaban  twice daily [Concomitant]
  3. Gabapentin 300 mg -1 capsules in morning [Concomitant]
  4. Flecainide Acetate 50 mg. twice daily [Concomitant]
  5. Plaquenil 200mg (generic hydroxychloroquine sulfate) two tablets daily [Concomitant]
  6. Atorvastatin 20mg once daily in am [Concomitant]
  7. Benicar HCT 40-25 mg One tablet daily in am [Concomitant]
  8. Metoprolol 100 mg One tablet daily @ night and ? tablet in morning [Concomitant]
  9. Prilosec OTC 20.6 mg over the counter drug once a day [Concomitant]
  10. Calcium 500 mg [Concomitant]
  11. Magnesium 500 mg [Concomitant]
  12. Potassium 99 mg combination pill over the counter  Two daily [Concomitant]
  13. Vitamin D3 1000IU - daily [Concomitant]
  14. Folic acid 1 mg. one tablet daily [Concomitant]
  15. PreserVision eye vitamins [Concomitant]
  16. Melatonin 20 mg one capsule at night [Concomitant]

REACTIONS (4)
  - Vomiting [None]
  - Migraine [None]
  - Nausea [None]
  - Loss of personal independence in daily activities [None]

NARRATIVE: CASE EVENT DATE: 20250517
